FAERS Safety Report 15858893 (Version 4)
Quarter: 2022Q3

REPORT INFORMATION
  Report Type: Report from Study
  Country: CA (occurrence: CA)
  Receive Date: 20190123
  Receipt Date: 20220708
  Transmission Date: 20221027
  Serious: Yes (Hospitalization)
  Sender: FDA-Public Use
  Company Number: CA-GLAXOSMITHKLINE-CA2019GSK010051

PATIENT

DRUGS (2)
  1. MEPOLIZUMAB [Suspect]
     Active Substance: MEPOLIZUMAB
     Indication: Asthma
     Dosage: UNK
     Route: 042
  2. MEPOLIZUMAB [Suspect]
     Active Substance: MEPOLIZUMAB
     Dosage: 100 MG, Z
     Route: 042

REACTIONS (7)
  - Hypertension [Unknown]
  - Pyrexia [Unknown]
  - Nausea [Unknown]
  - Vomiting [Unknown]
  - Cough [Unknown]
  - Influenza [Recovered/Resolved]
  - Blood pressure decreased [Unknown]
